FAERS Safety Report 7407829-6 (Version None)
Quarter: 2011Q1

REPORT INFORMATION
  Report Type: 
  Country: None (occurrence: None)
  Receive Date: 20110330
  Receipt Date: 20100223
  Transmission Date: 20110831
  Serious: No
  Sender: FDA-Public Use
  Company Number: DKLU1061220

PATIENT
  Age: 59 Year
  Sex: Male

DRUGS (6)
  1. FOSAMAX [Concomitant]
  2. RESTORIL [Concomitant]
  3. LIPITOR [Concomitant]
  4. DESOXYN [Suspect]
     Indication: NARCOLEPSY
     Dosage: SEE IMAGE: ORAL
  5. DESOXYN [Suspect]
     Indication: CONVULSION
     Dosage: SEE IMAGE: ORAL
  6. PROVIGIL (MODAFINIIL) [Concomitant]

REACTIONS (8)
  - INCORRECT DOSE ADMINISTERED [None]
  - FATIGUE [None]
  - DRUG INEFFECTIVE [None]
  - NAUSEA [None]
  - MALAISE [None]
  - TREMOR [None]
  - DIZZINESS [None]
  - ASTHENIA [None]
